FAERS Safety Report 5931064-1 (Version None)
Quarter: 2008Q4

REPORT INFORMATION
  Report Type: 
  Country: None (occurrence: None)
  Receive Date: 20081022
  Receipt Date: 20080723
  Transmission Date: 20090506
  Serious: Yes (Hospitalization)
  Sender: FDA-Public Use
  Company Number: CL000522008

PATIENT
  Age: 78 Year
  Sex: Female

DRUGS (11)
  1. CIPROFLOXACIN [Suspect]
     Indication: PYREXIA
     Dosage: 1500MG ORAL
     Route: 048
     Dates: start: 20080603, end: 20080610
  2. RITUXIMAB [Suspect]
  3. LLOPURINOL [Concomitant]
  4. CLARITHROMYCIN [Concomitant]
  5. CYCLOPHOSPHAMIDE [Concomitant]
  6. DOXORUBICIN HCL [Concomitant]
  7. LANSOPRAZOLE [Concomitant]
  8. METOCLOPRAMIDE HYDROCHLORIDE [Concomitant]
  9. PREDNISOLONE [Concomitant]
  10. VINCRISTINE [Concomitant]
  11. ZOFRAN [Concomitant]

REACTIONS (3)
  - MALAISE [None]
  - PYREXIA [None]
  - RENAL FAILURE [None]
